FAERS Safety Report 5294377-5 (Version None)
Quarter: 2007Q2

REPORT INFORMATION
  Report Type: 
  Country: None (occurrence: None)
  Receive Date: 20070409
  Receipt Date: 20070409
  Transmission Date: 20071010
  Serious: Yes (Hospitalization)
  Sender: FDA-Public Use
  Company Number: None

PATIENT
  Age: 61 Year
  Sex: Male

DRUGS (19)
  1. CAMPATH [Suspect]
     Indication: MYCOSIS FUNGOIDES
     Dosage: 30MG
     Dates: start: 20070228, end: 20070316
  2. ALLOPURINOL [Concomitant]
  3. CALCIUM ACETATE [Concomitant]
  4. RENAGAL [Concomitant]
  5. FLUCONAZOLE [Concomitant]
  6. VANCOMYCIN [Concomitant]
  7. ACETAMINOPHEN [Concomitant]
  8. DIPHENHYDRAMINE HCL [Concomitant]
  9. VALGANCICLOVIR HCL [Concomitant]
  10. SULFAMETHOXAZOLE [Concomitant]
  11. ENOXAPARIN SODIUM [Concomitant]
  12. ESOMEPRAZOLE MAGNESIUM [Concomitant]
  13. LIDA MANTLE CREAM [Concomitant]
  14. PRAMOSONE [Concomitant]
  15. EMOLLIENTS [Concomitant]
  16. ALLATONIN [Concomitant]
  17. EPINEPHRINE [Concomitant]
  18. HYDROXYZINE [Concomitant]
  19. HYDROCORTISONE [Concomitant]

REACTIONS (12)
  - ACUTE PRERENAL FAILURE [None]
  - ANURIA [None]
  - DIARRHOEA [None]
  - HAEMODIALYSIS [None]
  - HYPERKALAEMIA [None]
  - HYPERPHOSPHATAEMIA [None]
  - HYPOVOLAEMIA [None]
  - METABOLIC ACIDOSIS [None]
  - OEDEMA [None]
  - RENAL FAILURE ACUTE [None]
  - TUMOUR LYSIS SYNDROME [None]
  - WEIGHT INCREASED [None]
